FAERS Safety Report 20496353 (Version 2)
Quarter: 2022Q3

REPORT INFORMATION
  Report Type: Report from Study
  Country: US (occurrence: US)
  Receive Date: 20220221
  Receipt Date: 20220830
  Transmission Date: 20221027
  Serious: Yes (Other)
  Sender: FDA-Public Use
  Company Number: US-TAKEDA-2021TUS067183

PATIENT
  Age: 34 Year
  Sex: Female

DRUGS (1)
  1. LANADELUMAB [Suspect]
     Active Substance: LANADELUMAB
     Indication: Hereditary angioedema
     Dosage: 300 MILLIGRAM, Q2WEEKS
     Route: 058

REACTIONS (3)
  - COVID-19 [Recovering/Resolving]
  - Hereditary angioedema [Recovering/Resolving]
  - Dental operation [Recovering/Resolving]

NARRATIVE: CASE EVENT DATE: 20211027
